FAERS Safety Report 18576977 (Version 1)
Quarter: 2020Q4

REPORT INFORMATION
  Report Type: Report from Study
  Country: BR (occurrence: BR)
  Receive Date: 20201203
  Receipt Date: 20201203
  Transmission Date: 20210114
  Serious: Yes (Other)
  Sender: FDA-Public Use
  Company Number: BR-TAKEDA-BR201912590

PATIENT
  Sex: Male
  Weight: 43 kg

DRUGS (2)
  1. FEIBA NF [Suspect]
     Active Substance: ANTI-INHIBITOR COAGULANT COMPLEX
     Indication: FACTOR VIII DEFICIENCY
     Dosage: 3000 INTERNATIONAL UNIT, Q2WEEKS
     Route: 042
     Dates: start: 20071124, end: 20201020
  2. HEMO-8R [Suspect]
     Active Substance: ANTIHEMOPHILIC FACTOR, HUMAN RECOMBINANT
     Indication: FACTOR VIII DEFICIENCY
     Dosage: 1500 INTERNATIONAL UNIT, Q3WEEKS
     Route: 042
     Dates: start: 20071124, end: 20201020

REACTIONS (6)
  - Weight increased [Recovered/Resolved]
  - Epistaxis [Recovering/Resolving]
  - Drug ineffective [Recovered/Resolved]
  - Contusion [Recovered/Resolved]
  - Haemarthrosis [Recovering/Resolving]
  - Asthenia [Recovering/Resolving]
